FAERS Safety Report 9146329 (Version 1)
Quarter: 2013Q1

REPORT INFORMATION
  Report Type: Spontaneous
  Country: TR (occurrence: TR)
  Receive Date: 20130307
  Receipt Date: 20130307
  Transmission Date: 20140127
  Serious: Yes (Hospitalization, Other)
  Sender: FDA-Public Use
  Company Number: PHHY2013TR021034

PATIENT
  Age: 18 Year
  Sex: Male

DRUGS (9)
  1. ARIPIPRAZOLE [Suspect]
     Indication: MAJOR DEPRESSION
     Dosage: 15 MG, QD
  2. OLANZAPINE [Suspect]
     Indication: MAJOR DEPRESSION
     Dosage: 2.5 MG, QD
  3. OLANZAPINE [Suspect]
     Dosage: 10 MG, QD
  4. FLUOXETINE [Concomitant]
     Indication: DEPRESSION
     Dosage: 20 MG, QD
  5. FLUOXETINE [Concomitant]
     Dosage: 40 MG, QD
  6. VENLAFAXINE [Concomitant]
     Indication: DEPRESSION
     Dosage: 75 MG, QD
  7. BIPERIDEN [Concomitant]
     Dosage: UNK UKN, UNK
  8. BIPERIDEN [Concomitant]
     Dosage: 4 MG, QD
  9. BIPERIDEN [Concomitant]
     Dosage: 6 MG, QD

REACTIONS (7)
  - Neurodegenerative disorder [Recovering/Resolving]
  - Extrapyramidal disorder [Recovering/Resolving]
  - Dysphagia [Recovering/Resolving]
  - Dystonia [Recovering/Resolving]
  - Bradykinesia [Recovering/Resolving]
  - Muscle rigidity [Recovering/Resolving]
  - Drug ineffective [Unknown]
